FAERS Safety Report 9337025 (Version 1)
Quarter: 2013Q2

REPORT INFORMATION
  Report Type: Spontaneous
  Country: UY (occurrence: US)
  Receive Date: 20130607
  Receipt Date: 20130607
  Transmission Date: 20140414
  Serious: No
  Sender: FDA-Public Use
  Company Number: US-TEVA-410366USA

PATIENT
  Sex: Female

DRUGS (1)
  1. AZILECT [Suspect]

REACTIONS (1)
  - Weight decreased [Unknown]
